FAERS Safety Report 5013049-5 (Version None)
Quarter: 2006Q2

REPORT INFORMATION
  Report Type: 
  Country: None (occurrence: None)
  Receive Date: 20060530
  Receipt Date: 20060206
  Transmission Date: 20061013
  Serious: Yes (Hospitalization, Other)
  Sender: FDA-Public Use
  Company Number: US-GLAXOSMITHKLINE-A0592887A

PATIENT
  Age: 19 Year
  Sex: Female
  Weight: 54.5 kg

DRUGS (2)
  1. WELLBUTRIN XL [Suspect]
     Indication: DEPRESSION
     Dosage: 150MG PER DAY
     Route: 048
     Dates: start: 20060131, end: 20060202
  2. PROZAC [Concomitant]
     Indication: DEPRESSION
     Route: 048
     Dates: start: 20051201

REACTIONS (1)
  - GRAND MAL CONVULSION [None]
